FAERS Safety Report 20774771 (Version 1)
Quarter: 2022Q2

REPORT INFORMATION
  Report Type: Spontaneous
  Country: US (occurrence: None)
  Receive Date: 20220501
  Receipt Date: 20220501
  Transmission Date: 20220721
  Serious: Yes (Disabling)
  Sender: FDA-Public Use
  Company Number: None

PATIENT
  Age: 40 Year
  Sex: Male
  Weight: 99 kg

DRUGS (3)
  1. DOVATO [Suspect]
     Active Substance: DOLUTEGRAVIR SODIUM\LAMIVUDINE
     Indication: HIV infection
     Dosage: OTHER QUANTITY : 1 TABLET(S);?FREQUENCY : DAILY;?
     Route: 048
     Dates: start: 20210422, end: 20220126
  2. RISPERIDONE [Concomitant]
     Active Substance: RISPERIDONE
  3. SERTRALINE [Concomitant]
     Active Substance: SERTRALINE HYDROCHLORIDE

REACTIONS (12)
  - Arthralgia [None]
  - Joint swelling [None]
  - Musculoskeletal stiffness [None]
  - Joint stiffness [None]
  - Bone pain [None]
  - Arthritis [None]
  - Gait disturbance [None]
  - Dysstasia [None]
  - Arthralgia [None]
  - Joint swelling [None]
  - Bone deformity [None]
  - Pain in extremity [None]
